FAERS Safety Report 14284127 (Version 1)
Quarter: 2017Q4

REPORT INFORMATION
  Report Type: Spontaneous
  Country: AL (occurrence: AL)
  Receive Date: 20171214
  Receipt Date: 20171214
  Transmission Date: 20180321
  Serious: Yes (Death, Other)
  Sender: FDA-Public Use
  Company Number: AL-ASTELLAS-2017US053514

PATIENT
  Age: 21 Year
  Sex: Male

DRUGS (2)
  1. ANTIMONIATE DE MEGLUMINE [Concomitant]
     Indication: PRODUCT USED FOR UNKNOWN INDICATION
     Dosage: UNK UNK, UNKNOWN FREQ.
     Route: 065
  2. AMBISOME [Suspect]
     Active Substance: AMPHOTERICIN B
     Indication: VISCERAL LEISHMANIASIS
     Route: 065

REACTIONS (11)
  - Death [Fatal]
  - Pneumonia bacterial [Unknown]
  - Immune system disorder [Unknown]
  - Infectious pleural effusion [Unknown]
  - Pulmonary tuberculosis [Unknown]
  - Cerebrovascular accident [Unknown]
  - Visceral leishmaniasis [Unknown]
  - Lymph node tuberculosis [Unknown]
  - Hypersplenism [Unknown]
  - Hemiparesis [Unknown]
  - Portal vein thrombosis [Unknown]
